FAERS Safety Report 10142347 (Version 1)
Quarter: 2014Q2

REPORT INFORMATION
  Report Type: Spontaneous
  Country: US (occurrence: US)
  Receive Date: 20140429
  Receipt Date: 20140429
  Transmission Date: 20141212
  Serious: Yes (Other)
  Sender: FDA-Public Use
  Company Number: PHHY2014US050032

PATIENT
  Age: 47 Year
  Sex: Female

DRUGS (1)
  1. FTY 720 [Suspect]
     Indication: MULTIPLE SCLEROSIS
     Route: 048

REACTIONS (3)
  - Cerebral vasoconstriction [Recovering/Resolving]
  - Vasospasm [Recovering/Resolving]
  - Headache [Recovering/Resolving]
